FAERS Safety Report 4582580-9 (Version None)
Quarter: 2005Q1

REPORT INFORMATION
  Report Type: 
  Country: None (occurrence: None)
  Receive Date: 20050215
  Receipt Date: 20050204
  Transmission Date: 20050727
  Serious: Yes (Other)
  Sender: FDA-Public Use
  Company Number: PHEH2005US01693

PATIENT
  Age: 65 Year
  Sex: Male

DRUGS (3)
  1. EXELON [Suspect]
  2. ABILIFY [Concomitant]
  3. ALPRAZOLAM [Concomitant]

REACTIONS (3)
  - AKATHISIA [None]
  - DRUG INEFFECTIVE [None]
  - THERAPY NON-RESPONDER [None]
